FAERS Safety Report 18887867 (Version 1)
Quarter: 2021Q1

REPORT INFORMATION
  Report Type: Spontaneous
  Country: ES (occurrence: ES)
  Receive Date: 20210212
  Receipt Date: 20210212
  Transmission Date: 20210420
  Serious: Yes (Death)
  Sender: FDA-Public Use
  Company Number: ES-MALLINCKRODT-T202100557

PATIENT

DRUGS (2)
  1. UVADEX [Suspect]
     Active Substance: METHOXSALEN
     Indication: CHRONIC GRAFT VERSUS HOST DISEASE
  2. UVADEX [Suspect]
     Active Substance: METHOXSALEN
     Indication: GRAFT VERSUS HOST DISEASE
     Dosage: UNK, (EXTRACORPOREAL)
     Route: 050

REACTIONS (8)
  - Anaemia [Unknown]
  - Therapy partial responder [Unknown]
  - Death [Fatal]
  - Therapy non-responder [Unknown]
  - Product use in unapproved indication [Unknown]
  - Device issue [Unknown]
  - Hypocalcaemia [Unknown]
  - Hypotension [Unknown]
